FAERS Safety Report 17979152 (Version 4)
Quarter: 2020Q3

REPORT INFORMATION
  Report Type: Spontaneous
  Country: JP (occurrence: JP)
  Receive Date: 20200703
  Receipt Date: 20200915
  Transmission Date: 20201103
  Serious: Yes (Hospitalization)
  Sender: FDA-Public Use
  Company Number: JP-JNJFOC-20200635334

PATIENT
  Age: 69 Year
  Sex: Male

DRUGS (4)
  1. GONAX [Concomitant]
     Active Substance: DEGARELIX
     Dosage: UNKNOWN
     Route: 058
  2. ERLEADA [Suspect]
     Active Substance: APALUTAMIDE
     Indication: PROSTATE CANCER METASTATIC
     Dosage: APALUTAMIDE 60MG
     Route: 048
     Dates: start: 20200605
  3. RANMARK [Suspect]
     Active Substance: DENOSUMAB
     Indication: PROSTATE CANCER METASTATIC
     Dosage: UNKNOWN
     Route: 058
     Dates: end: 2020
  4. CELECOX [Concomitant]
     Active Substance: CELECOXIB
     Dosage: UNKNOWN
     Route: 065

REACTIONS (4)
  - Blood alkaline phosphatase increased [Not Recovered/Not Resolved]
  - Electrocardiogram QT prolonged [Recovering/Resolving]
  - Hypocalcaemia [Recovering/Resolving]
  - Rash [Recovering/Resolving]

NARRATIVE: CASE EVENT DATE: 2020
